FAERS Safety Report 11777842 (Version 1)
Quarter: 2015Q4

REPORT INFORMATION
  Report Type: Spontaneous
  Country: US (occurrence: US)
  Receive Date: 20151125
  Receipt Date: 20151125
  Transmission Date: 20160304
  Serious: Yes (Other)
  Sender: FDA-Public Use
  Company Number: US-THE MEDICINES COMPANY-US-MDCO-15-00275

PATIENT
  Age: 63 Year
  Sex: Male
  Weight: 127 kg

DRUGS (4)
  1. ASPIRIN. [Concomitant]
     Active Substance: ASPIRIN
     Indication: PERCUTANEOUS CORONARY INTERVENTION
  2. ANGIOMAX [Suspect]
     Active Substance: BIVALIRUDIN
     Dosage: 44.5ML/HR
     Route: 041
     Dates: end: 20150507
  3. ANGIOMAX [Suspect]
     Active Substance: BIVALIRUDIN
     Indication: PERCUTANEOUS CORONARY INTERVENTION
     Dosage: 19 CC
     Route: 040
     Dates: end: 20150507
  4. BRILINTA [Concomitant]
     Active Substance: TICAGRELOR
     Indication: PERCUTANEOUS CORONARY INTERVENTION

REACTIONS (3)
  - Vascular stent thrombosis [Unknown]
  - Coagulation time abnormal [Recovered/Resolved]
  - No therapeutic response [Unknown]

NARRATIVE: CASE EVENT DATE: 20150507
